FAERS Safety Report 5192127-4 (Version None)
Quarter: 2006Q4

REPORT INFORMATION
  Report Type: 
  Country: None (occurrence: None)
  Receive Date: 20061220
  Receipt Date: 20061205
  Transmission Date: 20070319
  Serious: Yes (Death, Hospitalization)
  Sender: FDA-Public Use
  Company Number: 232512

PATIENT
  Age: 74 Year
  Sex: Male

DRUGS (3)
  1. RAPTIVA [Suspect]
     Indication: PSORIASIS
     Dosage: SUBCUTANEOUS
     Route: 058
     Dates: start: 20060926
  2. DICLOFENAC SODIUM [Concomitant]
  3. CARBAMAZEPINE [Concomitant]

REACTIONS (12)
  - ARRHYTHMIA [None]
  - ATRIAL FIBRILLATION [None]
  - CARDIAC ARREST [None]
  - CONFUSIONAL STATE [None]
  - GENERAL PHYSICAL HEALTH DETERIORATION [None]
  - HAEMATOCRIT DECREASED [None]
  - HAEMOGLOBIN DECREASED [None]
  - HEART RATE INCREASED [None]
  - MENINGISM [None]
  - MENINGITIS STAPHYLOCOCCAL [None]
  - PLATELET COUNT DECREASED [None]
  - SEPTIC SHOCK [None]
